FAERS Safety Report 15719419 (Version 1)
Quarter: 2018Q4

REPORT INFORMATION
  Report Type: Spontaneous
  Country: BR (occurrence: BR)
  Receive Date: 20181213
  Receipt Date: 20181213
  Transmission Date: 20190205
  Serious: Yes (Hospitalization)
  Sender: FDA-Public Use
  Company Number: PHHY2018BR183110

PATIENT
  Sex: Female

DRUGS (1)
  1. EXELON PATCH [Suspect]
     Active Substance: RIVASTIGMINE
     Indication: PRODUCT USED FOR UNKNOWN INDICATION
     Dosage: 4.6 MG, QD PATCH 5 (CM2)
     Route: 062

REACTIONS (8)
  - Eating disorder [Unknown]
  - Blister [Unknown]
  - Weight decreased [Unknown]
  - Joint swelling [Unknown]
  - Skin burning sensation [Unknown]
  - Nausea [Unknown]
  - Discomfort [Unknown]
  - Hypersensitivity [Unknown]
